FAERS Safety Report 9171311 (Version 1)
Quarter: 2013Q1

REPORT INFORMATION
  Report Type: Report from Study
  Country: IT (occurrence: IT)
  Receive Date: 20130319
  Receipt Date: 20130319
  Transmission Date: 20140127
  Serious: Yes (Hospitalization)
  Sender: FDA-Public Use
  Company Number: PHHO2013IT003611

PATIENT
  Sex: 0

DRUGS (10)
  1. BLINDED ACZ885 [Suspect]
     Indication: CARDIOVASCULAR EVENT PROPHYLAXIS
     Dosage: DOUBLE BLINDED
     Route: 048
     Dates: start: 20120320
  2. BLINDED NO TREATMENT RECEIVED [Suspect]
     Indication: CARDIOVASCULAR EVENT PROPHYLAXIS
     Dosage: DOUBLE BLINDED
     Route: 048
     Dates: start: 20120320
  3. BLINDED PLACEBO [Suspect]
     Indication: CARDIOVASCULAR EVENT PROPHYLAXIS
     Dosage: DOUBLE BLINDED
     Route: 048
     Dates: start: 20120320
  4. INSULIN LISPRO [Concomitant]
     Indication: DIABETES MELLITUS
     Dosage: 6 IU, QD
     Dates: start: 20120725, end: 20130305
  5. INSULIN LISPRO [Concomitant]
     Dosage: 4 U, BID
  6. FUROSEMIDE [Concomitant]
     Indication: HYPERTENSION
     Dosage: 25 MG, BID
  7. FUROSEMIDE [Concomitant]
     Indication: CARDIAC FAILURE
  8. TIOTROPIUM [Concomitant]
     Indication: CHRONIC OBSTRUCTIVE PULMONARY DISEASE
     Dosage: 18 UG, BID
     Dates: end: 20130305
  9. SALMETEROL/FLUTICASONPROPIONAAT [Concomitant]
     Indication: CHRONIC OBSTRUCTIVE PULMONARY DISEASE
     Dosage: 1 DF, BID (50/500 MCG)
     Dates: end: 20130305
  10. METFORMIN [Concomitant]
     Indication: DIABETES MELLITUS
     Dosage: 500 MG, BID
     Dates: start: 20120207, end: 20130305

REACTIONS (1)
  - Pneumonia [Recovered/Resolved]
